FAERS Safety Report 4825372-5 (Version None)
Quarter: 2005Q4

REPORT INFORMATION
  Report Type: 
  Country: None (occurrence: None)
  Receive Date: 20051109
  Receipt Date: 20051027
  Transmission Date: 20060501
  Serious: Yes (Death, Other)
  Sender: FDA-Public Use
  Company Number: 2005150903

PATIENT
  Age: 73 Year
  Sex: Male
  Weight: 50 kg

DRUGS (5)
  1. LIPITOR [Suspect]
     Indication: FAT EMBOLISM
     Dosage: 10 MG (1 IN 1D)
     Dates: start: 20030601
  2. GLYBURIDE [Concomitant]
  3. ASPIRIN [Concomitant]
  4. PREDNISOLONE [Concomitant]
  5. LANSOPRAZOLE [Concomitant]

REACTIONS (7)
  - DEPRESSED LEVEL OF CONSCIOUSNESS [None]
  - DIABETES MELLITUS INADEQUATE CONTROL [None]
  - INADEQUATE ANALGESIA [None]
  - MYOCARDIAL INFARCTION [None]
  - PNEUMONIA ASPIRATION [None]
  - THERAPY NON-RESPONDER [None]
  - UPPER GASTROINTESTINAL HAEMORRHAGE [None]
